FAERS Safety Report 11590152 (Version 1)
Quarter: 2015Q4

REPORT INFORMATION
  Report Type: Spontaneous
  Country: CH (occurrence: CH)
  Receive Date: 20151002
  Receipt Date: 20151002
  Transmission Date: 20160304
  Serious: Yes (Other)
  Sender: FDA-Public Use
  Company Number: CH-ELI_LILLY_AND_COMPANY-CH201509008404

PATIENT
  Age: 31 Year
  Sex: Female

DRUGS (2)
  1. OXAZEPAM. [Suspect]
     Active Substance: OXAZEPAM
     Indication: ALCOHOL ABUSE
     Dosage: 60 MG, QD
     Route: 048
     Dates: start: 201505
  2. FLUOXETINE [Suspect]
     Active Substance: FLUOXETINE HYDROCHLORIDE
     Indication: ALCOHOL ABUSE
     Dosage: 20 MG, QD
     Route: 048
     Dates: start: 201505

REACTIONS (3)
  - Exposure during pregnancy [Unknown]
  - Amenorrhoea [Unknown]
  - Off label use [Unknown]

NARRATIVE: CASE EVENT DATE: 20150628
